FAERS Safety Report 25554265 (Version 2)
Quarter: 2025Q3

REPORT INFORMATION
  Report Type: Spontaneous
  Country: US (occurrence: US)
  Receive Date: 20250715
  Receipt Date: 20250723
  Transmission Date: 20251020
  Serious: No
  Sender: ABBVIE
  Company Number: US-ABBVIE-6370572

PATIENT
  Age: 91 Year
  Sex: Female

DRUGS (1)
  1. ARMOUR THYROID [Suspect]
     Active Substance: THYROID, PORCINE
     Indication: Hypothyroidism
     Route: 048
     Dates: start: 1980

REACTIONS (9)
  - Poor quality product administered [Not Recovered/Not Resolved]
  - Product solubility abnormal [Unknown]
  - Night sweats [Unknown]
  - Feeling abnormal [Unknown]
  - Product storage error [Not Recovered/Not Resolved]
  - Hypothyroidism [Unknown]
  - Thyroid hormones decreased [Unknown]
  - Drug ineffective [Recovered/Resolved]
  - Adverse drug reaction [Unknown]
